FAERS Safety Report 12916526 (Version 1)
Quarter: 2016Q4

REPORT INFORMATION
  Report Type: Spontaneous
  Country: US (occurrence: US)
  Receive Date: 20161107
  Receipt Date: 20161107
  Transmission Date: 20170207
  Serious: No
  Sender: FDA-Public Use
  Company Number: US-JAZZ-2016-US-015877

PATIENT
  Age: 39 Year
  Sex: Female

DRUGS (9)
  1. RESTASIS [Concomitant]
     Active Substance: CYCLOSPORINE
  2. ZOLADEX [Concomitant]
     Active Substance: GOSERELIN ACETATE
  3. NUVIGIL [Concomitant]
     Active Substance: ARMODAFINIL
  4. XYREM [Suspect]
     Active Substance: SODIUM OXYBATE
     Dosage: 3.75 G, BID
     Route: 048
     Dates: start: 201608
  5. HAIR, SKIN + NAILS [Concomitant]
     Active Substance: MINERALS\VITAMINS
  6. XYREM [Suspect]
     Active Substance: SODIUM OXYBATE
     Dosage: 2.5 G, BID
     Route: 048
     Dates: start: 201608, end: 201608
  7. TURMERIC [Concomitant]
     Active Substance: TURMERIC
  8. XYREM [Suspect]
     Active Substance: SODIUM OXYBATE
     Indication: NARCOLEPSY
     Dosage: 2.25 G, BID
     Route: 048
     Dates: start: 201608, end: 201608
  9. TAMOXIFEN [Concomitant]
     Active Substance: TAMOXIFEN

REACTIONS (6)
  - Incorrect dose administered [Unknown]
  - Confusional state [Unknown]
  - Feeling jittery [Not Recovered/Not Resolved]
  - Palpitations [Unknown]
  - Unevaluable event [Unknown]
  - Tremor [Not Recovered/Not Resolved]

NARRATIVE: CASE EVENT DATE: 201608
